FAERS Safety Report 16261333 (Version 1)
Quarter: 2019Q2

REPORT INFORMATION
  Report Type: Spontaneous
  Country: US (occurrence: US)
  Receive Date: 20190501
  Receipt Date: 20190501
  Transmission Date: 20190711
  Serious: Yes (Other)
  Sender: FDA-Public Use
  Company Number: US-MALLINCKRODT-T201903238

PATIENT
  Age: 44 Year
  Sex: Female

DRUGS (2)
  1. FENTANYL TRANSDERMAL SYSTEM [Suspect]
     Active Substance: FENTANYL
     Indication: PAIN
     Dosage: 75 MCG, 1 PATCH EVERY 48 HOURS
     Route: 062
  2. FENTANYL TRANSDERMAL SYSTEM [Suspect]
     Active Substance: FENTANYL
     Dosage: 75 MCG, 1 PATCH EVERY 48 HOURS
     Route: 062
     Dates: start: 20190414

REACTIONS (4)
  - Tooth fracture [Unknown]
  - Withdrawal syndrome [Recovering/Resolving]
  - Drug ineffective [Unknown]
  - Road traffic accident [Unknown]

NARRATIVE: CASE EVENT DATE: 201904
